FAERS Safety Report 5535458-8 (Version None)
Quarter: 2007Q4

REPORT INFORMATION
  Report Type: 
  Country: None (occurrence: None)
  Receive Date: 20071206
  Receipt Date: 20071130
  Transmission Date: 20080405
  Serious: Yes (Life-Threatening)
  Sender: FDA-Public Use
  Company Number: ES-AVENTIS-200721016GDDC

PATIENT
  Age: 78 Year
  Sex: Male

DRUGS (1)
  1. TAXOTERE [Suspect]
     Route: 042
     Dates: start: 20070830, end: 20070830

REACTIONS (5)
  - DYSPNOEA [None]
  - ERYTHEMA [None]
  - HYPERHIDROSIS [None]
  - HYPERTENSION [None]
  - RESPIRATORY FAILURE [None]
